FAERS Safety Report 6864236-2 (Version None)
Quarter: 2010Q3

REPORT INFORMATION
  Report Type: 
  Country: None (occurrence: None)
  Receive Date: 20100720
  Receipt Date: 20100713
  Transmission Date: 20110219
  Serious: Yes (Other)
  Sender: FDA-Public Use
  Company Number: 008871

PATIENT
  Sex: Female
  Weight: 9.0719 kg

DRUGS (7)
  1. KEPPRA [Suspect]
     Dosage: (500 MG BID TRANSPLACENTAL)
     Route: 064
  2. METFORMIN HCL [Concomitant]
  3. GLYBURIDE [Concomitant]
  4. PRENATAL VITAMINS /01549301/ [Concomitant]
  5. HUMALOG [Concomitant]
  6. HUMULIN /01040301/ [Concomitant]
  7. INSULIN MIXTARD SODIUM /00806401/ [Concomitant]

REACTIONS (2)
  - MACROCEPHALY [None]
  - MATERNAL DRUGS AFFECTING FOETUS [None]
